FAERS Safety Report 5232711-2 (Version None)
Quarter: 2007Q1

REPORT INFORMATION
  Report Type: 
  Country: None (occurrence: None)
  Receive Date: 20070206
  Receipt Date: 20070206
  Transmission Date: 20070707
  Serious: No
  Sender: FDA-Public Use
  Company Number: None

PATIENT
  Sex: Female
  Weight: 54.4316 kg

DRUGS (1)
  1. ELMIRON [Suspect]
     Indication: CYSTITIS INTERSTITIAL
     Dosage: 200 MG 2 X/DAY
     Dates: start: 20000131, end: 20060615

REACTIONS (2)
  - HYPERGAMMAGLOBULINAEMIA BENIGN MONOCLONAL [None]
  - OSTEOPOROSIS [None]
